FAERS Safety Report 24971042 (Version 2)
Quarter: 2025Q1

REPORT INFORMATION
  Report Type: Spontaneous
  Country: FR (occurrence: FR)
  Receive Date: 20250214
  Receipt Date: 20250219
  Transmission Date: 20250408
  Serious: Yes (Disabling)
  Sender: PFIZER
  Company Number: FR-MLMSERVICE-20250204-PI386458-00123-1

PATIENT
  Age: 62 Year
  Sex: Female

DRUGS (4)
  1. FLUOROURACIL [Suspect]
     Active Substance: FLUOROURACIL
     Indication: Adenocarcinoma gastric
  2. LEUCOVORIN CALCIUM [Suspect]
     Active Substance: LEUCOVORIN CALCIUM
     Indication: Adenocarcinoma gastric
  3. OXALIPLATIN [Suspect]
     Active Substance: OXALIPLATIN
     Indication: Adenocarcinoma gastric
  4. DOCETAXEL [Suspect]
     Active Substance: DOCETAXEL
     Indication: Adenocarcinoma gastric

REACTIONS (2)
  - Bone marrow oedema syndrome [Recovered/Resolved]
  - Off label use [Unknown]
